FAERS Safety Report 16734728 (Version 2)
Quarter: 2020Q2

REPORT INFORMATION
  Report Type: Spontaneous
  Country: PT (occurrence: PT)
  Receive Date: 20190823
  Receipt Date: 20200514
  Transmission Date: 20200713
  Serious: Yes (Life-Threatening, Hospitalization, Other)
  Sender: FDA-Public Use
  Company Number: PT-MYLANLABS-2019M1077912

PATIENT
  Age: 48 Year
  Sex: Female

DRUGS (12)
  1. ORLISTAT. [Interacting]
     Active Substance: ORLISTAT
     Indication: WEIGHT CONTROL
     Dosage: 50 MILLIGRAM,  COMPOUNDED PREPARATION
     Route: 065
  2. ETHINYLESTRADIOL/GESTODENE [Interacting]
     Active Substance: ETHINYL ESTRADIOL\GESTODENE
     Indication: CONTRACEPTION
     Dosage: 0.03 MG; GESTODENE: 0.07 MG
     Route: 048
  3. METFORMIN [Suspect]
     Active Substance: METFORMIN HYDROCHLORIDE
     Indication: WEIGHT CONTROL
     Dosage: COMPOUNDED PREPARATION
     Route: 065
  4. TOPIRAMATE. [Suspect]
     Active Substance: TOPIRAMATE
     Indication: WEIGHT CONTROL
     Dosage: 10 MILLIGRAM,  COMPOUNDED PREPARATION
     Route: 065
  5. PHENOLPHTHALEIN [Interacting]
     Active Substance: PHENOLPHTHALEIN
     Indication: WEIGHT CONTROL
     Dosage: 80 MILLIGRAM, COMPOUNDED PREPARATION
     Route: 065
  6. CHROMIUM PICOLINATE [Interacting]
     Active Substance: CHROMIUM PICOLINATE
     Indication: WEIGHT CONTROL
     Dosage: 200 MICROGRAM, AT THE DOSAGE OF 2 CAPSULES/DAY; COMPOUNDED PREPARATION
     Route: 065
  7. CHLORDIAZEPOXIDE. [Interacting]
     Active Substance: CHLORDIAZEPOXIDE
     Indication: WEIGHT CONTROL
     Dosage: 10 MILLIGRAM,  COMPOUNDED PREPARATION
     Route: 048
  8. FUROSEMIDE. [Interacting]
     Active Substance: FUROSEMIDE
     Indication: WEIGHT CONTROL
     Dosage: 40 MILLIGRAM,  COMPOUNDED PREPARATION
     Route: 065
  9. SENNA                              /00142201/ [Interacting]
     Active Substance: SENNA LEAF
     Indication: WEIGHT CONTROL
     Dosage: 20 MILLIGRAM, COMPOUNDED PREPARATION
     Route: 065
  10. CENTELLA ASIATICA [Interacting]
     Active Substance: CENTELLA ASIATICA WHOLE
     Indication: WEIGHT CONTROL
     Dosage: 200 MILLIGRAM, COMPOUNDED PREPARATION
     Route: 065
  11. BUPROPION. [Interacting]
     Active Substance: BUPROPION
     Indication: WEIGHT CONTROL
     Dosage: 100 MILLIGRAM, COMPOUNDED PREPARATION
     Route: 065
  12. CASCARA SAGRADA                    /00143201/ [Interacting]
     Active Substance: FRANGULA PURSHIANA BARK
     Indication: WEIGHT CONTROL
     Dosage: 40 MILLIGRAM, COMPOUNDED PREPARATION
     Route: 065

REACTIONS (3)
  - Intentional product misuse [Recovered/Resolved]
  - Drug interaction [Recovered/Resolved]
  - Cerebral venous thrombosis [Recovered/Resolved]
